FAERS Safety Report 13854960 (Version 1)
Quarter: 2017Q3

REPORT INFORMATION
  Report Type: Spontaneous
  Country: AT (occurrence: AT)
  Receive Date: 20170810
  Receipt Date: 20170810
  Transmission Date: 20171127
  Serious: Yes (Other)
  Sender: FDA-Public Use
  Company Number: AT-MYLANLABS-2017M1048647

PATIENT

DRUGS (1)
  1. CLADRIBINE. [Suspect]
     Active Substance: CLADRIBINE
     Indication: EXTRANODAL MARGINAL ZONE B-CELL LYMPHOMA (MALT TYPE)
     Dosage: 0.12 MG/KG DAYS 1-4 EVERY 4 WEEKS UPTO A MAXIMUM OF SIX CYCLES
     Route: 042

REACTIONS (1)
  - Gastric cancer [Not Recovered/Not Resolved]
